FAERS Safety Report 8571864-5 (Version None)
Quarter: 2012Q2

REPORT INFORMATION
  Report Type: 
  Country: None (occurrence: None)
  Receive Date: 20120418
  Receipt Date: 20091002
  Transmission Date: 20120825
  Serious: Yes (Other)
  Sender: FDA-Public Use
  Company Number: PHEH2009US12178

PATIENT
  Age: 57 Year
  Sex: Female

DRUGS (4)
  1. PRAVASTATIN [Suspect]
     Dosage: 40 MG, QHS
     Dates: start: 20090505
  2. ASPIRIN [Concomitant]
  3. NEXIUM [Concomitant]
  4. DIOVAN HCT [Suspect]
     Indication: HYPERTENSION
     Dosage: 160/12.5
     Dates: start: 20090505, end: 20090925

REACTIONS (6)
  - PHARYNGEAL OEDEMA [None]
  - LIP SWELLING [None]
  - THROAT IRRITATION [None]
  - ANGIOEDEMA [None]
  - MALAISE [None]
  - ODYNOPHAGIA [None]
